FAERS Safety Report 24111693 (Version 3)
Quarter: 2024Q4

REPORT INFORMATION
  Report Type: Spontaneous
  Country: FR (occurrence: FR)
  Receive Date: 20240718
  Receipt Date: 20241008
  Transmission Date: 20250115
  Serious: Yes (Hospitalization)
  Sender: PFIZER
  Company Number: FR-ROCHE-10000013836

PATIENT
  Age: 63 Year
  Sex: Female
  Weight: 78 kg

DRUGS (9)
  1. PACLITAXEL [Suspect]
     Active Substance: PACLITAXEL
     Indication: Triple negative breast cancer
     Dosage: UNK
     Route: 042
     Dates: start: 20240405
  2. PACLITAXEL [Suspect]
     Active Substance: PACLITAXEL
     Dosage: 194 MG
     Route: 042
     Dates: start: 20240614
  3. PACLITAXEL [Suspect]
     Active Substance: PACLITAXEL
     Dosage: 194 MG
     Route: 042
     Dates: start: 20240718
  4. TIRAGOLUMAB [Suspect]
     Active Substance: TIRAGOLUMAB
     Indication: Triple negative breast cancer
     Dosage: UNK
     Route: 042
     Dates: start: 20240405
  5. TIRAGOLUMAB [Suspect]
     Active Substance: TIRAGOLUMAB
     Dosage: 840 MG
     Route: 042
     Dates: start: 20240531
  6. ATEZOLIZUMAB [Suspect]
     Active Substance: ATEZOLIZUMAB
     Indication: Triple negative breast cancer
     Dosage: UNK
     Route: 042
     Dates: start: 20240405
  7. ATEZOLIZUMAB [Suspect]
     Active Substance: ATEZOLIZUMAB
     Dosage: 1680 MG, CYCLE 4 DAY 1
     Route: 042
     Dates: start: 20240531
  8. AMLODIPINE BESYLATE [Concomitant]
     Active Substance: AMLODIPINE BESYLATE
     Dosage: 5 MG IN TOTAL
     Route: 048
  9. RAMIPRIL [Concomitant]
     Active Substance: RAMIPRIL
     Dosage: 2.5 MG, 1X/DAY

REACTIONS (2)
  - Myocarditis [Not Recovered/Not Resolved]
  - Troponin increased [Recovered/Resolved]

NARRATIVE: CASE EVENT DATE: 20240627
